FAERS Safety Report 5529509-4 (Version None)
Quarter: 2007Q4

REPORT INFORMATION
  Report Type: 
  Country: None (occurrence: None)
  Receive Date: 20071129
  Receipt Date: 20071120
  Transmission Date: 20080405
  Serious: Yes (Other)
  Sender: FDA-Public Use
  Company Number: US-ELI_LILLY_AND_COMPANY-US200709006649

PATIENT
  Sex: Female

DRUGS (5)
  1. HUMALOG MIX 75/25 [Suspect]
     Dosage: 46 U, EACH MORNING
     Dates: start: 20070801
  2. HUMALOG MIX 75/25 [Suspect]
     Dosage: 30 U, EACH EVENING
     Dates: start: 20070801
  3. HUMULIN R [Suspect]
     Dosage: UNK, UNK
     Dates: start: 19870101
  4. HUMULIN N [Suspect]
     Dates: start: 19870101
  5. SYMLIN [Concomitant]
     Dosage: 2 U, UNK

REACTIONS (14)
  - AGITATION [None]
  - ANXIETY [None]
  - BLOOD GLUCOSE FLUCTUATION [None]
  - BURNING SENSATION [None]
  - CATARACT [None]
  - EYE HAEMORRHAGE [None]
  - FEELING ABNORMAL [None]
  - INFLAMMATION [None]
  - INJECTION SITE PAIN [None]
  - MEMORY IMPAIRMENT [None]
  - PAIN [None]
  - VISUAL ACUITY REDUCED [None]
  - WEIGHT DECREASED [None]
  - WEIGHT INCREASED [None]
